FAERS Safety Report 8772506 (Version 2)
Quarter: 2012Q4

REPORT INFORMATION
  Report Type: 
  Country: DK (occurrence: AU)
  Receive Date: 20120905
  Receipt Date: 20121109
  Transmission Date: 20130627
  Serious: Yes (Life-Threatening)
  Sender: FDA-Public Use
  Company Number: AU-FRI-1000038314

PATIENT
  Sex: Female

DRUGS (2)
  1. LEXAPRO [Suspect]
  2. ARIPIPRAZOLE [Suspect]
     Dosage: 10 mg

REACTIONS (3)
  - Gestational diabetes [Recovered/Resolved]
  - Hyperemesis gravidarum [Recovered/Resolved]
  - Pregnancy [Recovered/Resolved]
